FAERS Safety Report 6084099-5 (Version None)
Quarter: 2009Q1

REPORT INFORMATION
  Report Type: 
  Country: None (occurrence: None)
  Receive Date: 20090219
  Receipt Date: 20090131
  Transmission Date: 20090719
  Serious: Yes (Other)
  Sender: FDA-Public Use
  Company Number: IN-MERCK-0902USA03035

PATIENT
  Sex: Male
  Weight: 75 kg

DRUGS (3)
  1. JANUVIA [Suspect]
     Indication: DIABETES MELLITUS
     Route: 048
  2. GLYCOMET [Concomitant]
     Indication: DIABETES MELLITUS
     Route: 048
     Dates: start: 19960101
  3. AMARYL [Concomitant]
     Indication: DIABETES MELLITUS
     Route: 048

REACTIONS (4)
  - ABDOMINAL PAIN UPPER [None]
  - CONSTIPATION [None]
  - VOMITING [None]
  - WEIGHT DECREASED [None]
